FAERS Safety Report 8348229-4 (Version None)
Quarter: 2012Q2

REPORT INFORMATION
  Report Type: 
  Country: None (occurrence: None)
  Receive Date: 20120509
  Receipt Date: 20120504
  Transmission Date: 20120825
  Serious: Yes (Death, Hospitalization)
  Sender: FDA-Public Use
  Company Number: PHHO2010US11433

PATIENT
  Sex: Male

DRUGS (36)
  1. OXYGEN [Concomitant]
     Dosage: UNK
     Dates: start: 20020101
  2. PHENERGAN [Concomitant]
  3. CARVEDILOL [Concomitant]
     Dosage: UNK
     Dates: start: 20110806
  4. PREDNISONE TAB [Suspect]
     Indication: RENAL TRANSPLANT
     Dosage: UNK
     Route: 048
     Dates: start: 20100323
  5. INSULIN [Concomitant]
     Dosage: UNK
     Dates: start: 20110803
  6. LIPITOR [Concomitant]
  7. SPIRIVA [Concomitant]
     Dosage: UNK
     Dates: start: 20110804
  8. METOPROLOL TARTRATE [Concomitant]
     Dosage: UNK
     Dates: start: 20111022
  9. FERROUS SULFATE TAB [Concomitant]
     Dosage: UNK
     Dates: start: 20111019
  10. ALPRAZOLAM [Concomitant]
     Dosage: UNK
     Dates: start: 20120203
  11. NEORAL [Suspect]
     Dosage: 300 MG, QD
     Route: 048
     Dates: start: 20110704
  12. ESOMEPRAZOLE MAGNESIUM [Concomitant]
  13. DOCUSATE [Concomitant]
     Dosage: UNK
     Dates: start: 20110806
  14. ZOFRAN [Concomitant]
     Dosage: UNK
     Dates: start: 20110806
  15. FISH OIL [Concomitant]
     Dosage: UNK
     Dates: start: 20111019
  16. NEORAL [Suspect]
     Indication: RENAL TRANSPLANT
     Dosage: 300 MG, QD
     Route: 048
     Dates: start: 20100326
  17. CELLCEPT [Suspect]
     Indication: RENAL TRANSPLANT
     Dosage: UNK
     Route: 048
     Dates: start: 20100326
  18. ENALAPRIL MALEATE [Concomitant]
  19. COUMADIN [Concomitant]
     Dosage: UNK
     Dates: start: 20111012
  20. VITAMIN D [Concomitant]
     Dosage: UNK
     Dates: start: 20111019
  21. CELLCEPT [Suspect]
     Dosage: UNK
     Route: 048
     Dates: start: 20110804
  22. ASPIRIN [Concomitant]
     Dosage: UNK
     Dates: start: 20110806
  23. MELATONIN [Concomitant]
  24. PREDNISONE TAB [Suspect]
     Dosage: UNK
     Route: 048
     Dates: start: 20111005
  25. AMMONIUM LACTATE [Concomitant]
     Dosage: UNK
     Dates: start: 20070223
  26. DIFLUCAN [Concomitant]
  27. TRICOR [Concomitant]
  28. PREVACID [Concomitant]
     Dosage: UNK
     Dates: start: 20110804
  29. PRAMOSONE [Concomitant]
     Dosage: UNK
     Dates: start: 20090811
  30. FUROSEMIDE [Concomitant]
     Dosage: UNK
     Dates: start: 20111019
  31. THYROID TAB [Concomitant]
     Dosage: UNK
     Dates: start: 20110806
  32. NIZORAL [Concomitant]
     Dosage: UNK
     Dates: start: 20070223
  33. AMLODIPINE [Concomitant]
  34. ADVAIR DISKUS 100/50 [Concomitant]
     Dosage: UNK
     Dates: start: 20110806
  35. HYDROXYZINE [Concomitant]
     Dosage: UNK
     Dates: start: 20110404
  36. KETOCONAZOLE [Concomitant]

REACTIONS (4)
  - CELLULITIS [None]
  - ACUTE RESPIRATORY FAILURE [None]
  - BLOOD CREATININE INCREASED [None]
  - ACUTE RESPIRATORY DISTRESS SYNDROME [None]
